FAERS Safety Report 9705998 (Version 2)
Quarter: 2013Q4

REPORT INFORMATION
  Report Type: Spontaneous
  Country: CN (occurrence: CN)
  Receive Date: 20131122
  Receipt Date: 20131219
  Transmission Date: 20140711
  Serious: Yes (Hospitalization)
  Sender: FDA-Public Use
  Company Number: CN-B.I. PHARMACEUTICALS,INC./RIDGEFIELD-2013-BI-38855YA

PATIENT
  Age: 80 Year
  Sex: Male

DRUGS (3)
  1. HARNAL [Suspect]
     Indication: DYSURIA
     Dosage: 0.2 MG
     Route: 048
     Dates: start: 20131112
  2. HARNAL [Suspect]
     Indication: BENIGN PROSTATIC HYPERPLASIA
  3. HARNAL [Suspect]
     Indication: URETHRAL OBSTRUCTION

REACTIONS (2)
  - Loss of consciousness [Not Recovered/Not Resolved]
  - Dyskinesia [Not Recovered/Not Resolved]
